FAERS Safety Report 15059166 (Version 1)
Quarter: 2018Q2

REPORT INFORMATION
  Report Type: Spontaneous
  Country: US (occurrence: US)
  Receive Date: 20180605
  Receipt Date: 20180605
  Transmission Date: 20180711
  Serious: Yes (Hospitalization)
  Sender: FDA-Public Use
  Company Number: None

PATIENT
  Sex: Male

DRUGS (12)
  1. GLUCOS/CHOND [Concomitant]
  2. GLUCOTROL [Concomitant]
     Active Substance: GLIPIZIDE
  3. NEXIUM [Concomitant]
     Active Substance: ESOMEPRAZOLE MAGNESIUM
  4. ZOLADEX [Suspect]
     Active Substance: GOSERELIN ACETATE
     Indication: PROSTATE CANCER
     Dosage: 10.8 MG Q 12 WEEKS SUBCUTANEOUS?
     Route: 058
     Dates: start: 20151022
  5. APPLE CIDER CAP [Concomitant]
  6. GINKOBA [Concomitant]
     Active Substance: GINKGO
  7. FISH OIL [Concomitant]
     Active Substance: FISH OIL
  8. ST JOHNS WARTS [Concomitant]
  9. ACIDOPHILUS [Concomitant]
     Active Substance: LACTOBACILLUS ACIDOPHILUS
  10. ASPIRIN. [Concomitant]
     Active Substance: ASPIRIN
  11. GLIPIZIDE. [Concomitant]
     Active Substance: GLIPIZIDE
  12. ZOLOFT [Concomitant]
     Active Substance: SERTRALINE HYDROCHLORIDE

REACTIONS (1)
  - Hospitalisation [None]
